FAERS Safety Report 17941404 (Version 3)
Quarter: 2020Q3

REPORT INFORMATION
  Report Type: Spontaneous
  Country: MX (occurrence: MX)
  Receive Date: 20200624
  Receipt Date: 20200706
  Transmission Date: 20201103
  Serious: Yes (Death, Life-Threatening, Hospitalization, Other)
  Sender: FDA-Public Use
  Company Number: MX-PFIZER INC-2020242193

PATIENT
  Sex: Male

DRUGS (5)
  1. METHOTREXATE SODIUM. [Suspect]
     Active Substance: METHOTREXATE SODIUM
     Indication: NON-HODGKIN^S LYMPHOMA
     Dosage: UNK, CYCLIC
  2. IFOSFAMIDE. [Suspect]
     Active Substance: IFOSFAMIDE
     Indication: NON-HODGKIN^S LYMPHOMA
     Dosage: UNK, CYCLIC
  3. L?ASPARAGINASE [Suspect]
     Active Substance: ASPARAGINASE
     Indication: NON-HODGKIN^S LYMPHOMA
     Dosage: UNK, CYCLIC
  4. ETOPOSIDE. [Suspect]
     Active Substance: ETOPOSIDE
     Indication: NON-HODGKIN^S LYMPHOMA
     Dosage: UNK, CYCLIC
  5. DEXAMETHASONE. [Suspect]
     Active Substance: DEXAMETHASONE
     Indication: NON-HODGKIN^S LYMPHOMA
     Dosage: UNK, CYCLIC

REACTIONS (2)
  - Pneumonia [Fatal]
  - Mucosal inflammation [Unknown]
